FAERS Safety Report 10622200 (Version 1)
Quarter: 2014Q4

REPORT INFORMATION
  Report Type: Spontaneous
  Country: US (occurrence: None)
  Receive Date: 20141201
  Receipt Date: 20141201
  Transmission Date: 20150529
  Serious: Yes (Other)
  Sender: FDA-Public Use
  Company Number: None

PATIENT
  Age: 52 Year
  Sex: Female
  Weight: 68.2 kg

DRUGS (2)
  1. ZALEPLON 10 MG ROXANE [Suspect]
     Active Substance: ZALEPLON
     Indication: INSOMNIA
     Route: 048
     Dates: start: 20141018, end: 20141118
  2. ZOLPIDEM TARTRATE 10 MG [Suspect]
     Active Substance: ZOLPIDEM TARTRATE
     Indication: INSOMNIA
     Route: 048
     Dates: start: 20120505, end: 20120605

REACTIONS (2)
  - Paradoxical drug reaction [None]
  - Insomnia [None]

NARRATIVE: CASE EVENT DATE: 20141018
